FAERS Safety Report 8113283-1 (Version None)
Quarter: 2012Q1

REPORT INFORMATION
  Report Type: 
  Country: None (occurrence: None)
  Receive Date: 20120203
  Receipt Date: 20120126
  Transmission Date: 20120608
  Serious: Yes (Life-Threatening, Other)
  Sender: FDA-Public Use
  Company Number: US-PERRIGO-12US000865

PATIENT
  Sex: Male
  Weight: 42.63 kg

DRUGS (1)
  1. JUNIOR STRENGTH IBUPROFEN [Suspect]
     Indication: TOOTHACHE
     Dosage: 200 MG, SINGLE
     Route: 048
     Dates: start: 20120126, end: 20120126

REACTIONS (4)
  - ANAPHYLACTIC REACTION [None]
  - RASH [None]
  - UNDERDOSE [None]
  - PHARYNGEAL OEDEMA [None]
